FAERS Safety Report 20598718 (Version 1)
Quarter: 2022Q1

REPORT INFORMATION
  Report Type: Report from Study
  Country: US (occurrence: US)
  Receive Date: 20220315
  Receipt Date: 20220315
  Transmission Date: 20220423
  Serious: Yes (Other)
  Sender: FDA-Public Use
  Company Number: US-BIOGEN-2022BI01103596

PATIENT
  Age: 13 Year
  Sex: Female
  Weight: 50.848 kg

DRUGS (1)
  1. SPINRAZA [Suspect]
     Active Substance: NUSINERSEN
     Indication: Spinal muscular atrophy
     Dosage: PHYSICIAN TO ADMINISTER 12MG/5ML INTRATHECALLY ONCE EVERY 4 MONTHS.
     Route: 037

REACTIONS (9)
  - Road traffic accident [Recovered/Resolved]
  - Ankle fracture [Unknown]
  - Femur fracture [Unknown]
  - Joint dislocation [Unknown]
  - Spinal column injury [Unknown]
  - Arthralgia [Not Recovered/Not Resolved]
  - Product dose omission issue [Unknown]
  - Device physical property issue [Unknown]
  - Back pain [Not Recovered/Not Resolved]

NARRATIVE: CASE EVENT DATE: 20220101
